FAERS Safety Report 21715498 (Version 1)
Quarter: 2022Q4

REPORT INFORMATION
  Report Type: Spontaneous
  Country: US (occurrence: None)
  Receive Date: 20221209
  Receipt Date: 20221209
  Transmission Date: 20230113
  Serious: Yes (Hospitalization, Disabling)
  Sender: FDA-Public Use
  Company Number: None

PATIENT
  Age: 53 Year
  Sex: Female
  Weight: 71.1 kg

DRUGS (6)
  1. SAXENDA [Suspect]
     Active Substance: LIRAGLUTIDE
     Indication: Obesity
     Dosage: FREQUENCY : DAILY;?
     Route: 058
     Dates: start: 20220906, end: 20221025
  2. OXYCODONE [Concomitant]
     Active Substance: OXYCODONE
  3. TIZANIDINE [Concomitant]
     Active Substance: TIZANIDINE
  4. PANTOPRAZOLE [Concomitant]
     Active Substance: PANTOPRAZOLE
  5. SUCRALFATE [Concomitant]
     Active Substance: SUCRALFATE
  6. ZOLOFT [Concomitant]
     Active Substance: SERTRALINE HYDROCHLORIDE

REACTIONS (14)
  - Feeling abnormal [None]
  - Abdominal pain [None]
  - Swelling [None]
  - Vomiting [None]
  - Diarrhoea [None]
  - Loss of personal independence in daily activities [None]
  - Hallucination [None]
  - Post-traumatic stress disorder [None]
  - Renal failure [None]
  - Large intestine infection [None]
  - Blood pressure decreased [None]
  - Ulcer [None]
  - COVID-19 [None]
  - Near death experience [None]

NARRATIVE: CASE EVENT DATE: 20221031
